FAERS Safety Report 20405421 (Version 1)
Quarter: 2022Q1

REPORT INFORMATION
  Report Type: Other
  Country: JP (occurrence: None)
  Receive Date: 20220131
  Receipt Date: 20220131
  Transmission Date: 20220423
  Serious: Yes (Other)
  Sender: FDA-Public Use
  Company Number: JP-ROCHE-3009510

PATIENT
  Age: 50 Year
  Sex: Male

DRUGS (4)
  1. ATEZOLIZUMAB [Suspect]
     Active Substance: ATEZOLIZUMAB
     Indication: Sarcomatoid carcinoma of the lung
     Route: 065
  2. BEVACIZUMAB [Suspect]
     Active Substance: BEVACIZUMAB
     Indication: Sarcomatoid carcinoma of the lung
     Route: 065
  3. CARBOPLATIN [Suspect]
     Active Substance: CARBOPLATIN
     Indication: Sarcomatoid carcinoma of the lung
     Route: 065
  4. PACLITAXEL [Suspect]
     Active Substance: PACLITAXEL
     Indication: Sarcomatoid carcinoma of the lung
     Route: 065

REACTIONS (4)
  - Adrenal insufficiency [Unknown]
  - Neutropenia [Unknown]
  - Hypertension [Unknown]
  - Peripheral sensory neuropathy [Unknown]
